FAERS Safety Report 23793266 (Version 1)
Quarter: 2024Q2

REPORT INFORMATION
  Report Type: Spontaneous
  Country: CN (occurrence: CN)
  Receive Date: 20240429
  Receipt Date: 20240429
  Transmission Date: 20240717
  Serious: Yes (Hospitalization)
  Sender: FDA-Public Use
  Company Number: CN-BAT-2024BAT000164

PATIENT
  Age: 31 Year
  Sex: Female
  Weight: 52.0 kg

DRUGS (1)
  1. TOFIDENCE [Suspect]
     Active Substance: TOCILIZUMAB-BAVI
     Indication: Still^s disease
     Dosage: ONE SINGLE DOSE
     Route: 041
     Dates: start: 20240404, end: 20240404

REACTIONS (1)
  - Anaphylactic shock [Recovered/Resolved]

NARRATIVE: CASE EVENT DATE: 20240404
